FAERS Safety Report 6663251-1 (Version None)
Quarter: 2010Q2

REPORT INFORMATION
  Report Type: 
  Country: None (occurrence: None)
  Receive Date: 20100401
  Receipt Date: 20100329
  Transmission Date: 20101027
  Serious: Yes (Hospitalization)
  Sender: FDA-Public Use
  Company Number: TR-BAYER-201020521GPV

PATIENT
  Age: 61 Year
  Sex: Female
  Weight: 62 kg

DRUGS (4)
  1. AVELOX [Suspect]
     Indication: URINARY TRACT INFECTION
     Dosage: TOTAL DAILY DOSE: 400 MG  UNIT DOSE: 400 MG
     Route: 048
     Dates: start: 20100306, end: 20100306
  2. MICARDIS [Concomitant]
     Route: 048
  3. KAPRIL [Concomitant]
     Route: 048
  4. INSIDON [Concomitant]
     Route: 048

REACTIONS (4)
  - DYSKINESIA [None]
  - HYPERTENSION [None]
  - RASH [None]
  - SPEECH DISORDER [None]
